FAERS Safety Report 10708507 (Version 1)
Quarter: 2015Q1

REPORT INFORMATION
  Report Type: Spontaneous
  Country: US (occurrence: US)
  Receive Date: 20150113
  Receipt Date: 20150113
  Transmission Date: 20150721
  Serious: No
  Sender: FDA-Public Use
  Company Number: US-009507513-1501USA003993

PATIENT
  Sex: Female

DRUGS (3)
  1. PREDNISONE. [Interacting]
     Active Substance: PREDNISONE
     Route: 048
  2. OXYCODONE [Interacting]
     Active Substance: OXYCODONE
  3. NOXAFIL [Suspect]
     Active Substance: POSACONAZOLE
     Route: 048

REACTIONS (3)
  - Drug effect increased [Unknown]
  - Drug withdrawal syndrome [Unknown]
  - Drug interaction [Unknown]
